FAERS Safety Report 5260488-3 (Version None)
Quarter: 2007Q1

REPORT INFORMATION
  Report Type: 
  Country: None (occurrence: None)
  Receive Date: 20070309
  Receipt Date: 20061004
  Transmission Date: 20070707
  Serious: No
  Sender: FDA-Public Use
  Company Number: US-GLAXOSMITHKLINE-A0622101A

PATIENT
  Sex: Male

DRUGS (1)
  1. NICORETTE (MINT) [Suspect]

REACTIONS (2)
  - NICOTINE DEPENDENCE [None]
  - PHARMACEUTICAL PRODUCT COMPLAINT [None]
